FAERS Safety Report 5646483-0 (Version None)
Quarter: 2008Q1

REPORT INFORMATION
  Report Type: 
  Country: None (occurrence: None)
  Receive Date: 20080303
  Receipt Date: 20080225
  Transmission Date: 20080703
  Serious: Yes (Hospitalization)
  Sender: FDA-Public Use
  Company Number: CN-WYE-G01131008

PATIENT
  Sex: Male
  Weight: 60 kg

DRUGS (2)
  1. EFFEXOR XR [Suspect]
     Indication: DEPRESSED MOOD
     Route: 048
     Dates: start: 20080221, end: 20080223
  2. ST. JOHN'S WORT [Concomitant]
     Dates: start: 20080101

REACTIONS (3)
  - HAEMATURIA [None]
  - HENOCH-SCHONLEIN PURPURA [None]
  - SKIN HAEMORRHAGE [None]
